FAERS Safety Report 25906402 (Version 1)
Quarter: 2025Q4

REPORT INFORMATION
  Report Type: Spontaneous
  Country: EU (occurrence: EU)
  Receive Date: 20251010
  Receipt Date: 20251010
  Transmission Date: 20260117
  Serious: Yes (Death, Other)
  Sender: ABBVIE
  Company Number: EU-ABBOTT-07P-083-0423362-00

PATIENT
  Age: 69 Year
  Sex: Male

DRUGS (4)
  1. SEVOFLURANE [Suspect]
     Active Substance: SEVOFLURANE
     Indication: Maintenance of anaesthesia
     Route: 055
  2. SEVOFLURANE [Suspect]
     Active Substance: SEVOFLURANE
     Indication: Maintenance of anaesthesia
     Dosage: TWICE IN 2 DAYS TOTAL FLOW 5 L/M
     Route: 055
  3. THIOPENTAL [Concomitant]
     Active Substance: THIOPENTAL
     Indication: Endotracheal intubation
     Dosage: 3 MILLIGRAM/KILOGRAM
     Route: 042
  4. SUCCINYLCHOLINE [Concomitant]
     Active Substance: SUCCINYLCHOLINE
     Indication: Endotracheal intubation
     Dosage: 1 MILLIGRAM/KILOGRAM
     Route: 042

REACTIONS (8)
  - Coagulopathy [Fatal]
  - Cardiac failure [Fatal]
  - Hepatic necrosis [Fatal]
  - Acute hepatic failure [Fatal]
  - Coma [Fatal]
  - Renal failure [Fatal]
  - Jaundice [Fatal]
  - Respiratory failure [Fatal]
